FAERS Safety Report 9577205 (Version 1)
Quarter: 2013Q4

REPORT INFORMATION
  Report Type: Spontaneous
  Country: US (occurrence: US)
  Receive Date: 20131001
  Receipt Date: 20131001
  Transmission Date: 20140711
  Serious: No
  Sender: FDA-Public Use
  Company Number: US-AMGEN-USASP2013006752

PATIENT
  Age: 49 Year
  Sex: Female
  Weight: 73.92 kg

DRUGS (2)
  1. ENBREL [Suspect]
     Indication: RHEUMATOID ARTHRITIS
     Dosage: 50 MG, QWK
     Route: 058
     Dates: start: 2012
  2. ENBREL [Suspect]
     Indication: FIBROMYALGIA

REACTIONS (3)
  - Headache [Unknown]
  - Pyrexia [Unknown]
  - Injection site pain [Unknown]
